FAERS Safety Report 7003148-0 (Version None)
Quarter: 2010Q3

REPORT INFORMATION
  Report Type: 
  Country: None (occurrence: None)
  Receive Date: 20100920
  Receipt Date: 20100721
  Transmission Date: 20110219
  Serious: No
  Sender: FDA-Public Use
  Company Number: US-ASTRAZENECA-2010SE33994

PATIENT
  Sex: Female
  Weight: 73.5 kg

DRUGS (4)
  1. SEROQUEL XR [Suspect]
     Indication: DEPRESSION
     Route: 048
     Dates: start: 20100701
  2. STEROID SHOTS [Concomitant]
     Indication: PATELLA FRACTURE
  3. XANEX [Concomitant]
     Indication: FEELING OF RELAXATION
  4. ZANTAC [Concomitant]
     Indication: HIATUS HERNIA

REACTIONS (3)
  - ABDOMINAL PAIN UPPER [None]
  - DRY MOUTH [None]
  - WEIGHT INCREASED [None]
